FAERS Safety Report 11055843 (Version 3)
Quarter: 2015Q4

REPORT INFORMATION
  Report Type: Spontaneous
  Country: IL (occurrence: IL)
  Receive Date: 20150422
  Receipt Date: 20151118
  Transmission Date: 20160304
  Serious: Yes (Other)
  Sender: FDA-Public Use
  Company Number: IL-JNJFOC-20150413197

PATIENT
  Age: 44 Year
  Sex: Male

DRUGS (2)
  1. SIMPONI [Suspect]
     Active Substance: GOLIMUMAB
     Indication: ANKYLOSING SPONDYLITIS
     Route: 058
  2. SIMPONI [Suspect]
     Active Substance: GOLIMUMAB
     Indication: ANKYLOSING SPONDYLITIS
     Route: 058
     Dates: start: 20141210

REACTIONS (10)
  - Deafness [Not Recovered/Not Resolved]
  - VIIIth nerve injury [Not Recovered/Not Resolved]
  - Ear infection bacterial [Unknown]
  - Headache [Recovered/Resolved]
  - Blister [Unknown]
  - Migraine [Recovered/Resolved]
  - Ear pain [Recovered/Resolved]
  - Paraesthesia [Not Recovered/Not Resolved]
  - Skin papilloma [Recovered/Resolved]
  - Sinusitis [Not Recovered/Not Resolved]

NARRATIVE: CASE EVENT DATE: 2015
